FAERS Safety Report 15596731 (Version 2)
Quarter: 2018Q4

REPORT INFORMATION
  Report Type: Spontaneous
  Country: JP (occurrence: JP)
  Receive Date: 20181108
  Receipt Date: 20181108
  Transmission Date: 20190205
  Serious: Yes (Hospitalization)
  Sender: FDA-Public Use
  Company Number: JP-JNJFOC-20181045325

PATIENT
  Age: 67 Year
  Sex: Female

DRUGS (15)
  1. COCARL [Suspect]
     Active Substance: ACETAMINOPHEN
     Indication: PYREXIA
     Route: 065
  2. LACTOBACILLUS BIFIDUS [Suspect]
     Active Substance: BIFIDOBACTERIUM BIFIDUM
     Indication: ARTHRALGIA
     Route: 065
  3. LACTOBACILLUS BIFIDUS [Suspect]
     Active Substance: BIFIDOBACTERIUM BIFIDUM
     Indication: PYREXIA
     Route: 065
  4. TYLENOL [Suspect]
     Active Substance: ACETAMINOPHEN
     Indication: PYREXIA
     Route: 065
  5. TYLENOL [Suspect]
     Active Substance: ACETAMINOPHEN
     Indication: OROPHARYNGEAL PAIN
     Route: 065
  6. COCARL [Suspect]
     Active Substance: ACETAMINOPHEN
     Indication: ARTHRALGIA
     Route: 065
  7. LOXOPROFEN [Suspect]
     Active Substance: LOXOPROFEN
     Indication: OROPHARYNGEAL PAIN
     Route: 065
  8. LOXOPROFEN [Suspect]
     Active Substance: LOXOPROFEN
     Indication: PYREXIA
     Route: 065
  9. MEIACT MS [Suspect]
     Active Substance: CEFDITOREN PIVOXIL
     Indication: OROPHARYNGEAL PAIN
     Route: 065
  10. COCARL [Suspect]
     Active Substance: ACETAMINOPHEN
     Indication: OROPHARYNGEAL PAIN
     Route: 065
  11. TYLENOL [Suspect]
     Active Substance: ACETAMINOPHEN
     Indication: ARTHRALGIA
     Route: 065
  12. LOXOPROFEN [Suspect]
     Active Substance: LOXOPROFEN
     Indication: ARTHRALGIA
     Route: 065
  13. MEIACT MS [Suspect]
     Active Substance: CEFDITOREN PIVOXIL
     Indication: ARTHRALGIA
     Route: 065
  14. MEIACT MS [Suspect]
     Active Substance: CEFDITOREN PIVOXIL
     Indication: PYREXIA
     Route: 065
  15. LACTOBACILLUS BIFIDUS [Suspect]
     Active Substance: BIFIDOBACTERIUM BIFIDUM
     Indication: OROPHARYNGEAL PAIN
     Route: 065

REACTIONS (3)
  - Off label use [Unknown]
  - Stevens-Johnson syndrome [Recovered/Resolved]
  - Product use in unapproved indication [Unknown]
